FAERS Safety Report 5836563-9 (Version None)
Quarter: 2008Q3

REPORT INFORMATION
  Report Type: 
  Country: None (occurrence: None)
  Receive Date: 20080801
  Receipt Date: 20080424
  Transmission Date: 20090109
  Serious: No
  Sender: FDA-Public Use
  Company Number: 2008-0415

PATIENT
  Age: 21 Year
  Sex: Male

DRUGS (1)
  1. SOMATULINE DEPOT [Suspect]
     Indication: ACROMEGALY
     Dosage: 60MG(1 IN 4WK),SUBCUT
     Route: 058
     Dates: start: 20080319

REACTIONS (1)
  - ABDOMINAL PAIN LOWER [None]
